FAERS Safety Report 5701852-5 (Version None)
Quarter: 2008Q2

REPORT INFORMATION
  Report Type: 
  Country: None (occurrence: None)
  Receive Date: 20080408
  Receipt Date: 20080325
  Transmission Date: 20081010
  Serious: Yes (Other)
  Sender: FDA-Public Use
  Company Number: JPKYO-S-20080025

PATIENT
  Age: 58 Year
  Sex: Female

DRUGS (3)
  1. NAVELBINE [Suspect]
     Indication: BREAST CANCER RECURRENT
     Dosage: 25 MG/M2;QD; IV
     Route: 042
     Dates: start: 20060508, end: 20060605
  2. SOFRAN [Concomitant]
  3. DECADRON [Concomitant]

REACTIONS (2)
  - CHEST PAIN [None]
  - MALAISE [None]
